FAERS Safety Report 5846138-3 (Version None)
Quarter: 2008Q3

REPORT INFORMATION
  Report Type: 
  Country: None (occurrence: None)
  Receive Date: 20080813
  Receipt Date: 20080805
  Transmission Date: 20090109
  Serious: Yes (Other)
  Sender: FDA-Public Use
  Company Number: 2008SP016161

PATIENT
  Age: 58 Year
  Sex: Male
  Weight: 123.3784 kg

DRUGS (4)
  1. CLARITIN [Suspect]
     Indication: LACRIMATION INCREASED
     Dosage: 10 MG
  2. CLARITIN [Suspect]
     Indication: RHINORRHOEA
     Dosage: 10 MG
  3. AMLODOPINE (CON.) [Concomitant]
  4. LISINOPRIL (CON.) [Concomitant]

REACTIONS (2)
  - BLOOD PRESSURE SYSTOLIC INCREASED [None]
  - FATIGUE [None]
